FAERS Safety Report 26169349 (Version 1)
Quarter: 2025Q4

REPORT INFORMATION
  Report Type: Report from Study
  Country: ZA (occurrence: ZA)
  Receive Date: 20251217
  Receipt Date: 20251217
  Transmission Date: 20260118
  Serious: Yes (Other)
  Sender: ROCHE
  Company Number: ZA-ROCHE-10000225036

PATIENT
  Sex: Female

DRUGS (5)
  1. OCREVUS [Suspect]
     Active Substance: OCRELIZUMAB
     Indication: Relapsing-remitting multiple sclerosis
     Dosage: THEREAFTER 600MG EVERY 6 MONTHS.
     Route: 041
     Dates: start: 20230428
  2. OCREVUS [Suspect]
     Active Substance: OCRELIZUMAB
     Route: 041
  3. OCREVUS [Suspect]
     Active Substance: OCRELIZUMAB
     Route: 041
  4. SOLU-MEDROL [Concomitant]
     Active Substance: METHYLPREDNISOLONE SODIUM SUCCINATE
  5. PREDNISONE [Concomitant]
     Active Substance: PREDNISONE

REACTIONS (4)
  - Multiple sclerosis relapse [Unknown]
  - Fatigue [Unknown]
  - Upper respiratory tract infection [Recovered/Resolved]
  - B-lymphocyte count decreased [Unknown]
